FAERS Safety Report 15500661 (Version 1)
Quarter: 2018Q4

REPORT INFORMATION
  Report Type: Spontaneous
  Country: US (occurrence: US)
  Receive Date: 20181015
  Receipt Date: 20181015
  Transmission Date: 20190205
  Serious: Yes (Life-Threatening, Hospitalization, Disabling)
  Sender: FDA-Public Use
  Company Number: None

PATIENT
  Age: 58 Year
  Sex: Female
  Weight: 54.9 kg

DRUGS (1)
  1. CIPROFLOXACIN. [Suspect]
     Active Substance: CIPROFLOXACIN
     Indication: URINARY TRACT INFECTION
     Dates: start: 20180719, end: 20180726

REACTIONS (7)
  - Intentional product misuse [None]
  - Anxiety [None]
  - Panic reaction [None]
  - Depressed level of consciousness [None]
  - Paranoia [None]
  - Suicide attempt [None]
  - Nervous system disorder [None]

NARRATIVE: CASE EVENT DATE: 20180807
